FAERS Safety Report 6645090-0 (Version None)
Quarter: 2010Q1

REPORT INFORMATION
  Report Type: 
  Country: None (occurrence: None)
  Receive Date: 20100322
  Receipt Date: 20100310
  Transmission Date: 20100710
  Serious: Yes (Other)
  Sender: FDA-Public Use
  Company Number: CL-PFIZER INC-2010030761

PATIENT
  Age: 85 Year
  Sex: Female

DRUGS (3)
  1. XALATAN [Suspect]
     Dosage: 1 DROP IN LEFT EYE AT NIGHT, 1X/DAY
     Route: 047
     Dates: start: 20091210
  2. CARDIO ASPIRINA [Concomitant]
     Dosage: UNK
  3. ENALTEN [Concomitant]
     Indication: HYPERTENSION
     Dosage: UNK

REACTIONS (1)
  - PERIORBITAL HAEMATOMA [None]
